FAERS Safety Report 7442055-6 (Version None)
Quarter: 2011Q2

REPORT INFORMATION
  Report Type: 
  Country: None (occurrence: None)
  Receive Date: 20110428
  Receipt Date: 20110419
  Transmission Date: 20111010
  Serious: Yes (Other)
  Sender: FDA-Public Use
  Company Number: US-BAXTER-2011BH012573

PATIENT

DRUGS (12)
  1. CISPLATIN [Suspect]
     Indication: BILE DUCT CANCER
     Route: 042
  2. NORMAL SALINE [Concomitant]
     Indication: PRODUCT USED FOR UNKNOWN INDICATION
     Route: 065
  3. FENTANYL [Concomitant]
     Indication: ANAESTHESIA
     Route: 042
  4. CEFAZOLIN [Concomitant]
     Indication: PRODUCT USED FOR UNKNOWN INDICATION
     Route: 065
  5. MITOMYCIN [Suspect]
     Indication: BILE DUCT CANCER
     Route: 042
  6. MIDAZOLAM [Concomitant]
     Indication: ANAESTHESIA
     Route: 042
  7. ETHIODOL [Suspect]
     Indication: BILE DUCT CANCER
     Route: 042
  8. POLYVINYL ALCOHOL [Suspect]
     Indication: BILE DUCT CANCER
     Route: 042
  9. DOXORUBICIN [Suspect]
     Indication: BILE DUCT CANCER
     Route: 042
  10. DEXAMETHASONE [Concomitant]
     Indication: PRODUCT USED FOR UNKNOWN INDICATION
     Route: 065
  11. ONDANSETRON [Concomitant]
     Indication: PROPHYLAXIS
     Route: 065
  12. LIDOCAINE [Concomitant]
     Indication: LOCAL ANAESTHESIA
     Route: 065

REACTIONS (2)
  - RENAL FAILURE ACUTE [None]
  - DEHYDRATION [None]
